FAERS Safety Report 25158142 (Version 3)
Quarter: 2025Q2

REPORT INFORMATION
  Report Type: Report from Study
  Country: US (occurrence: US)
  Receive Date: 20250404
  Receipt Date: 20250414
  Transmission Date: 20250717
  Serious: No
  Sender: AMGEN
  Company Number: US-AMGEN-USASP2025064719

PATIENT
  Age: 41 Year
  Sex: Female

DRUGS (2)
  1. TEPEZZA [Suspect]
     Active Substance: TEPROTUMUMAB-TRBW
     Indication: Endocrine ophthalmopathy
     Dosage: 20 MILLIGRAM/KILOGRAM, Q3WK
     Route: 040
     Dates: start: 20250217
  2. TEPEZZA [Suspect]
     Active Substance: TEPROTUMUMAB-TRBW
     Indication: Toxic goitre
     Dosage: 20 MILLIGRAM/KILOGRAM, Q3WK (THIRD INFUSION)
     Route: 040
     Dates: start: 20250331

REACTIONS (2)
  - Muscle spasms [Unknown]
  - Urinary tract infection [Unknown]

NARRATIVE: CASE EVENT DATE: 20250101
